FAERS Safety Report 9263719 (Version 1)
Quarter: 2013Q2

REPORT INFORMATION
  Report Type: Spontaneous
  Country: GR (occurrence: GR)
  Receive Date: 20130430
  Receipt Date: 20130430
  Transmission Date: 20140414
  Serious: Yes (Hospitalization, Other)
  Sender: FDA-Public Use
  Company Number: GR-PFIZER INC-2013126570

PATIENT
  Sex: Female

DRUGS (3)
  1. FLUCONAZOLE [Suspect]
     Indication: CANDIDA INFECTION
     Dosage: 12 MG/KG, PER DAY
     Route: 048
  2. MYCOSTATIN [Suspect]
     Indication: CANDIDA INFECTION
     Route: 048
  3. PENICILLIN NOS [Suspect]
     Indication: BACTERIAL INFECTION
     Dosage: 400000 IU PER KG PER DAY
     Route: 048

REACTIONS (2)
  - Drug ineffective [Unknown]
  - Angiocentric lymphoma [Unknown]
